FAERS Safety Report 17633170 (Version 1)
Quarter: 2020Q2

REPORT INFORMATION
  Report Type: Spontaneous
  Country: US (occurrence: US)
  Receive Date: 20200406
  Receipt Date: 20200406
  Transmission Date: 20200713
  Serious: Yes (Hospitalization)
  Sender: FDA-Public Use
  Company Number: US-SA-2020SA050636

PATIENT
  Sex: Female

DRUGS (1)
  1. ENOXAPARIN SODIUM. [Suspect]
     Active Substance: ENOXAPARIN SODIUM
     Dosage: 40 MG
     Route: 058

REACTIONS (4)
  - Product packaging quantity issue [Unknown]
  - Contusion [Unknown]
  - Injury associated with device [Unknown]
  - Device issue [Unknown]

NARRATIVE: CASE EVENT DATE: 20200212
